FAERS Safety Report 13354689 (Version 1)
Quarter: 2017Q1

REPORT INFORMATION
  Report Type: Spontaneous
  Country: BR (occurrence: BR)
  Receive Date: 20170321
  Receipt Date: 20170321
  Transmission Date: 20170429
  Serious: Yes (Other)
  Sender: FDA-Public Use
  Company Number: BR-GLAXOSMITHKLINE-BR2017GSK038273

PATIENT
  Sex: Female
  Weight: 67 kg

DRUGS (6)
  1. SIMVASTATIN. [Concomitant]
     Active Substance: SIMVASTATIN
  2. VOLTAREN [Suspect]
     Active Substance: DICLOFENAC SODIUM
     Indication: PRODUCT USED FOR UNKNOWN INDICATION
  3. LOSARTAN. [Concomitant]
     Active Substance: LOSARTAN
  4. HYDROCHLOROTHIAZIDE AND OLMESARTAN [Concomitant]
  5. SERETIDE [Concomitant]
     Active Substance: FLUTICASONE PROPIONATE\SALMETEROL XINAFOATE
  6. ACTEMRA [Suspect]
     Active Substance: TOCILIZUMAB
     Indication: RHEUMATOID ARTHRITIS

REACTIONS (7)
  - Oxygen saturation decreased [Unknown]
  - Drug hypersensitivity [Unknown]
  - Lung disorder [Unknown]
  - Speech disorder [Unknown]
  - Dyspnoea [Unknown]
  - Fatigue [Unknown]
  - Abasia [Unknown]
